FAERS Safety Report 13361970 (Version 1)
Quarter: 2017Q1

REPORT INFORMATION
  Report Type: Report from Study
  Country: ES (occurrence: ES)
  Receive Date: 20170323
  Receipt Date: 20170323
  Transmission Date: 20170429
  Serious: Yes (Other)
  Sender: FDA-Public Use
  Company Number: ES-ROCHE-1593899

PATIENT

DRUGS (7)
  1. MYCOPHENOLATE MOFETIL. [Suspect]
     Active Substance: MYCOPHENOLATE MOFETIL
     Indication: UVEITIS
     Route: 065
  2. METHOTREXATE. [Suspect]
     Active Substance: METHOTREXATE
     Indication: UVEITIS
     Dosage: 10-15 MG/M2/WEEK
     Route: 065
  3. LEFLUNOMIDE. [Suspect]
     Active Substance: LEFLUNOMIDE
     Indication: UVEITIS
     Dosage: 10 MG/DAY FOR CHILDREN WEIGHING 20-40 KG AND 20 MG/DAY FOR CHILDREN WEIGHING }40 KG
     Route: 065
  4. CICLOSPORIN A [Suspect]
     Active Substance: CYCLOSPORINE
     Indication: UVEITIS
     Route: 065
  5. RITUXIMAB [Suspect]
     Active Substance: RITUXIMAB
     Indication: UVEITIS
     Dosage: TOTAL 2 DOSES
     Route: 042
  6. TOCILIZUMAB [Suspect]
     Active Substance: TOCILIZUMAB
     Indication: UVEITIS
     Dosage: EVERY 4 WEEKS, EVERY 2 WEEKS, OR EVERY 8 WEEKS
     Route: 042
  7. TOCILIZUMAB [Suspect]
     Active Substance: TOCILIZUMAB
     Indication: UVEITIS
     Route: 058

REACTIONS (9)
  - Drug ineffective [Unknown]
  - Infusion related reaction [Unknown]
  - Product use issue [Unknown]
  - Bullous impetigo [Unknown]
  - Autoimmune haemolytic anaemia [Unknown]
  - Immune thrombocytopenic purpura [Unknown]
  - Off label use [Unknown]
  - Conjunctivitis viral [Unknown]
  - Pneumonia [Unknown]
